FAERS Safety Report 20156839 (Version 2)
Quarter: 2022Q2

REPORT INFORMATION
  Report Type: Report from Study
  Country: US (occurrence: US)
  Receive Date: 20211207
  Receipt Date: 20220405
  Transmission Date: 20220721
  Serious: Yes (Other)
  Sender: FDA-Public Use
  Company Number: US-TAKEDA-2020TUS044502

PATIENT
  Age: 64 Year
  Sex: Female

DRUGS (1)
  1. HUMAN IMMUNOGLOBULIN G\HYALURONIDASE RECOMBINANT HUMAN [Suspect]
     Active Substance: HUMAN IMMUNOGLOBULIN G\HYALURONIDASE RECOMBINANT HUMAN
     Indication: Primary immunodeficiency syndrome
     Dosage: 27.5 GRAM, MONTHLY
     Route: 065

REACTIONS (9)
  - Multiple sclerosis [Unknown]
  - Pneumonia [Unknown]
  - Bronchitis [Unknown]
  - Urinary tract infection [Unknown]
  - Inappropriate schedule of product administration [Unknown]
  - Laryngitis [Unknown]
  - Sinusitis [Unknown]
  - Dysphonia [Unknown]
  - Weight increased [Unknown]

NARRATIVE: CASE EVENT DATE: 20210111
